FAERS Safety Report 7101234-8 (Version None)
Quarter: 2010Q4

REPORT INFORMATION
  Report Type: 
  Country: None (occurrence: None)
  Receive Date: 20101115
  Receipt Date: 20101101
  Transmission Date: 20110411
  Serious: Yes (Hospitalization)
  Sender: FDA-Public Use
  Company Number: SG-RANBAXY-2010RR-39293

PATIENT
  Age: 61 Year
  Sex: Female

DRUGS (4)
  1. CLOPIDOGREL [Suspect]
  2. OMEPRAZOLE [Suspect]
  3. SIMVASTATIN [Suspect]
  4. METFORMIN [Suspect]

REACTIONS (1)
  - DRUG RASH WITH EOSINOPHILIA AND SYSTEMIC SYMPTOMS [None]
